FAERS Safety Report 14620003 (Version 2)
Quarter: 2018Q2

REPORT INFORMATION
  Report Type: Spontaneous
  Country: IT (occurrence: IT)
  Receive Date: 20180309
  Receipt Date: 20180410
  Transmission Date: 20180711
  Serious: Yes (Hospitalization)
  Sender: FDA-Public Use
  Company Number: IT-TEVA-583439ISR

PATIENT
  Age: 46 Year
  Sex: Male

DRUGS (3)
  1. VALPROATE [Concomitant]
     Active Substance: VALPROIC ACID
     Dosage: 400 MILLIGRAM DAILY;
     Route: 065
  2. OLANZAPINE. [Suspect]
     Active Substance: OLANZAPINE
     Indication: SCHIZOAFFECTIVE DISORDER DEPRESSIVE TYPE
     Dosage: 20 MILLIGRAM DAILY; GRADUALLY INTRODUCED, REACHED A DOSE OF 20 MG/DAY WITHIN 2W
     Route: 065
  3. VALPROATE [Concomitant]
     Active Substance: VALPROIC ACID
     Dosage: 800 MILLIGRAM DAILY; 800MG/DAY, LATER RECEIVED 400MG/DAY
     Route: 065

REACTIONS (3)
  - Suicidal ideation [Recovering/Resolving]
  - Hallucination, auditory [Recovered/Resolved]
  - Mental disorder [Recovered/Resolved]
